FAERS Safety Report 14334188 (Version 3)
Quarter: 2018Q1

REPORT INFORMATION
  Report Type: Spontaneous
  Country: CN (occurrence: CN)
  Receive Date: 20171228
  Receipt Date: 20180116
  Transmission Date: 20180509
  Serious: Yes (Other)
  Sender: FDA-Public Use
  Company Number: CN-009507513-1711CHN002057

PATIENT
  Age: 27 Year
  Sex: Male
  Weight: 66 kg

DRUGS (1)
  1. NOXAFIL [Suspect]
     Active Substance: POSACONAZOLE
     Indication: LUNG INFECTION
     Dosage: 200 MG. THREE TIMES DAILY
     Route: 048
     Dates: start: 20171031, end: 20171204

REACTIONS (7)
  - Off label use [Unknown]
  - Drug-induced liver injury [Recovered/Resolved]
  - Blood glucose increased [Recovered/Resolved]
  - Hypoaesthesia [Recovered/Resolved]
  - Pyrexia [Recovered/Resolved]
  - Pyrexia [Recovered/Resolved]
  - Hypokalaemia [Recovered/Resolved]

NARRATIVE: CASE EVENT DATE: 20171031
